APPROVED DRUG PRODUCT: MEMANTINE HYDROCHLORIDE
Active Ingredient: MEMANTINE HYDROCHLORIDE
Strength: 10MG
Dosage Form/Route: TABLET;ORAL
Application: A204389 | Product #002 | TE Code: AB
Applicant: HETERO LABS LTD UNIT V
Approved: Sep 26, 2022 | RLD: No | RS: No | Type: RX